FAERS Safety Report 17172312 (Version 1)
Quarter: 2019Q4

REPORT INFORMATION
  Report Type: Spontaneous
  Country: JP (occurrence: JP)
  Receive Date: 20191219
  Receipt Date: 20191219
  Transmission Date: 20200122
  Serious: Yes (Hospitalization, Other)
  Sender: FDA-Public Use
  Company Number: NVSJ2019JP005397

PATIENT
  Age: 46 Year
  Sex: Male

DRUGS (1)
  1. CYCLOSPORINE. [Suspect]
     Active Substance: CYCLOSPORINE
     Indication: APLASTIC ANAEMIA
     Dosage: 200 MG
     Route: 065

REACTIONS (15)
  - Pericarditis [Recovering/Resolving]
  - Pleural thickening [Unknown]
  - Chest pain [Recovering/Resolving]
  - Sjogren^s syndrome [Unknown]
  - Saliva analysis abnormal [Unknown]
  - Pleurisy [Recovering/Resolving]
  - Ophthalmological examination abnormal [Unknown]
  - Pericardial effusion [Unknown]
  - Systemic lupus erythematosus [Unknown]
  - Antiphospholipid antibodies positive [Unknown]
  - Pyrexia [Unknown]
  - Pleural effusion [Unknown]
  - Pericardial fibrosis [Unknown]
  - Antinuclear antibody positive [Unknown]
  - DNA antibody positive [Unknown]
